FAERS Safety Report 5819810-9 (Version None)
Quarter: 2008Q3

REPORT INFORMATION
  Report Type: 
  Country: None (occurrence: None)
  Receive Date: 20080717
  Receipt Date: 20080707
  Transmission Date: 20090109
  Serious: Yes (Hospitalization, Disabling, Other)
  Sender: FDA-Public Use
  Company Number: 08H-163-0314551-00

PATIENT
  Sex: Male

DRUGS (5)
  1. VANCOMYCIN HCL [Suspect]
     Indication: ARTHRITIS BACTERIAL
     Dosage: 1 GM, EVERY 12 HOURS, INTRAVENOUS
     Route: 042
     Dates: start: 20060524
  2. CEFTRIAXONE [Suspect]
     Indication: ARTHRITIS BACTERIAL
     Dates: start: 20060528
  3. TYGACIL [Concomitant]
  4. DIFLUCAN [Concomitant]
  5. PRIMAXIN [Concomitant]

REACTIONS (9)
  - CHILLS [None]
  - ECCHYMOSIS [None]
  - HYPOTENSION [None]
  - MOUTH HAEMORRHAGE [None]
  - SEPSIS [None]
  - STEVENS-JOHNSON SYNDROME [None]
  - TACHYCARDIA [None]
  - TOXIC EPIDERMAL NECROLYSIS [None]
  - VOMITING [None]
